FAERS Safety Report 19433989 (Version 1)
Quarter: 2021Q2

REPORT INFORMATION
  Report Type: Spontaneous
  Country: US (occurrence: US)
  Receive Date: 20210618
  Receipt Date: 20210618
  Transmission Date: 20210717
  Serious: No
  Sender: FDA-Public Use
  Company Number: US-PFIZER INC-2021314815

PATIENT
  Age: 46 Year
  Sex: Male

DRUGS (1)
  1. SUTENT [Suspect]
     Active Substance: SUNITINIB MALATE
     Indication: RENAL CANCER
     Dosage: 50 MG, CYCLIC (DAILY FOR 28 DAYS THEN 14 DAYS OFF AND REPEAT ON A 42 DAY CYCLE)
     Route: 048
     Dates: start: 202102

REACTIONS (4)
  - Dry skin [Unknown]
  - Sensitive skin [Unknown]
  - Pancreatic enzymes increased [Unknown]
  - Dysgeusia [Unknown]
